FAERS Safety Report 11420975 (Version 2)
Quarter: 2015Q3

REPORT INFORMATION
  Report Type: Spontaneous
  Country: ZA (occurrence: ZA)
  Receive Date: 20150826
  Receipt Date: 20150917
  Transmission Date: 20151125
  Serious: Yes (Death)
  Sender: FDA-Public Use
  Company Number: ZA-BAYER-2015-408892

PATIENT
  Age: 52 Year
  Sex: Male

DRUGS (4)
  1. STIVARGA [Suspect]
     Active Substance: REGORAFENIB
     Indication: COLORECTAL CANCER
     Dosage: 160 MG, QD
     Route: 048
     Dates: start: 20150624, end: 20150706
  2. DUROGESIC [Concomitant]
     Active Substance: FENTANYL
     Dosage: 25UG/H
  3. TRAMACET [PARACETAMOL,TRAMADOL HYDROCHLORIDE] [Concomitant]
     Dosage: 2TABLETS 3TIMES PER DAY
  4. CATAFLAM [DICLOFENAC POTASSIUM] [Concomitant]
     Dosage: 50MG 1 TABLET DAY

REACTIONS (1)
  - Colorectal cancer metastatic [Fatal]

NARRATIVE: CASE EVENT DATE: 20150706
